FAERS Safety Report 22159970 (Version 1)
Quarter: 2023Q1

REPORT INFORMATION
  Report Type: Spontaneous
  Country: US (occurrence: None)
  Receive Date: 20230330
  Receipt Date: 20230330
  Transmission Date: 20230418
  Serious: No
  Sender: FDA-Public Use
  Company Number: None

PATIENT
  Sex: Male
  Weight: 54.88 kg

DRUGS (10)
  1. ABIRATERONE ACETATE [Suspect]
     Active Substance: ABIRATERONE ACETATE
     Indication: Prostate cancer
     Dosage: FREQUENCY : DAILY;?
     Route: 048
     Dates: start: 20220306
  2. AMLODIPINE [Concomitant]
     Active Substance: AMLODIPINE BESYLATE
  3. CRANBERRY [Concomitant]
     Active Substance: CRANBERRY
  4. ELIQUIS [Concomitant]
     Active Substance: APIXABAN
  5. FLOMAX [Concomitant]
     Active Substance: TAMSULOSIN HYDROCHLORIDE
  6. IRON [Concomitant]
     Active Substance: IRON
  7. LUPRON DEPOT [Concomitant]
     Active Substance: LEUPROLIDE ACETATE
  8. MELATONIN [Concomitant]
  9. METOPROLOL [Concomitant]
     Active Substance: METOPROLOL
  10. SIMVASTATIN [Concomitant]

REACTIONS (3)
  - Haemorrhage urinary tract [None]
  - Fatigue [None]
  - Full blood count abnormal [None]
